FAERS Safety Report 7979438-1 (Version None)
Quarter: 2011Q4

REPORT INFORMATION
  Report Type: 
  Country: None (occurrence: None)
  Receive Date: 20111214
  Receipt Date: 20111208
  Transmission Date: 20120403
  Serious: Yes (Death, Hospitalization)
  Sender: FDA-Public Use
  Company Number: PHHY2011EC108239

PATIENT
  Sex: Female

DRUGS (1)
  1. EXFORGE HCT [Suspect]
     Indication: HYPERTENSION
     Dosage: 1 DF(160/UNK/12.5 MG), DAILY
     Dates: start: 20110526

REACTIONS (2)
  - CARDIAC DISORDER [None]
  - RENAL DISORDER [None]
